FAERS Safety Report 16618786 (Version 1)
Quarter: 2019Q3

REPORT INFORMATION
  Report Type: Spontaneous
  Country: PL (occurrence: PL)
  Receive Date: 20190723
  Receipt Date: 20190723
  Transmission Date: 20191004
  Serious: Yes (Hospitalization)
  Sender: FDA-Public Use
  Company Number: PHHY2018PL185477

PATIENT
  Age: 65 Year
  Sex: Female

DRUGS (12)
  1. MORPHINE [Suspect]
     Active Substance: MORPHINE
     Dosage: 10 MG, UNK
     Route: 058
  2. BUPRENORPHINE. [Suspect]
     Active Substance: BUPRENORPHINE
     Indication: PAIN
     Dosage: 70 UG, QH
     Route: 062
  3. MORPHINE [Suspect]
     Active Substance: MORPHINE
     Indication: PAIN
     Dosage: 5 MG, UNK
     Route: 058
  4. NALOXONE [Suspect]
     Active Substance: NALOXONE
     Dosage: NALOXONE +OXYCODONE=5MG+10 MG
     Route: 048
  5. PREGABALIN. [Suspect]
     Active Substance: PREGABALIN
     Indication: PAIN
     Dosage: 75 UG, BID
     Route: 065
  6. PREGABALIN. [Suspect]
     Active Substance: PREGABALIN
     Dosage: 300 MG, QD
     Route: 048
  7. NALOXONE [Suspect]
     Active Substance: NALOXONE
     Indication: PAIN
     Dosage: UNK UNK, BID
     Route: 048
  8. NALOXONE [Suspect]
     Active Substance: NALOXONE
     Dosage: NALOXONE + OXYCODONE =10MG+20MG
     Route: 048
  9. TRAMADOL+PARACETAMOL [Suspect]
     Active Substance: ACETAMINOPHEN\TRAMADOL
     Indication: PAIN
     Dosage: UNK (PARACETAMOL: 325 UG, TRAMADOL: 37.5 UG )
     Route: 065
  10. PREGABALIN. [Suspect]
     Active Substance: PREGABALIN
     Indication: NEURALGIA
     Dosage: 150 MG, QD
     Route: 065
  11. MORPHINE SULFATE. [Concomitant]
     Active Substance: MORPHINE SULFATE
     Indication: FACIAL PAIN
     Dosage: 5 MG, UNK
     Route: 058
  12. BUPRENORPHINE. [Suspect]
     Active Substance: BUPRENORPHINE
     Dosage: 105 UG, QH; 105 MICROGRAM, QH/ UP TO 105 ?G
     Route: 062

REACTIONS (4)
  - Inadequate analgesia [Not Recovered/Not Resolved]
  - Therapeutic product effect incomplete [Not Recovered/Not Resolved]
  - Constipation [Unknown]
  - Contraindicated product administered [Unknown]
